FAERS Safety Report 7322678 (Version 3)
Quarter: 2014Q1

REPORT INFORMATION
  Report Type: Spontaneous
  Country: US (occurrence: US)
  Receive Date: 20100317
  Receipt Date: 20140326
  Transmission Date: 20141002
  Serious: Yes (Hospitalization, Other)
  Sender: FDA-Public Use
  Company Number: US-ROCHE-690619

PATIENT
  Sex: Female
  Weight: 61.2 kg

DRUGS (1)
  1. ACCUTANE [Suspect]
     Indication: ACNE
     Route: 065
     Dates: start: 1994, end: 1995

REACTIONS (4)
  - Anal fissure [Unknown]
  - Proctalgia [Unknown]
  - Rectal haemorrhage [Unknown]
  - Hypersensitivity [Unknown]
